FAERS Safety Report 4379206-6 (Version None)
Quarter: 2004Q2

REPORT INFORMATION
  Report Type: 
  Country: None (occurrence: None)
  Receive Date: 20040614
  Receipt Date: 20040507
  Transmission Date: 20050107
  Serious: Yes (Hospitalization, Other)
  Sender: FDA-Public Use
  Company Number: 2004018448

PATIENT
  Sex: Female

DRUGS (2)
  1. LIPITOR [Suspect]
     Indication: BLOOD CHOLESTEROL INCREASED
     Dosage: 10 MG (1 IN 1 D)
     Dates: start: 20030325
  2. LEVOTHYROXINE SODIUM [Concomitant]

REACTIONS (3)
  - GENERALISED OEDEMA [None]
  - RHABDOMYOLYSIS [None]
  - WEIGHT INCREASED [None]
